FAERS Safety Report 25488163 (Version 1)
Quarter: 2025Q2

REPORT INFORMATION
  Report Type: Other
  Country: GB (occurrence: GB)
  Receive Date: 20250627
  Receipt Date: 20250627
  Transmission Date: 20250717
  Serious: Yes (Other)
  Sender: MACLEODS
  Company Number: None

PATIENT

DRUGS (1)
  1. MEMANTINE [Suspect]
     Active Substance: MEMANTINE
     Indication: Product used for unknown indication
     Route: 065

REACTIONS (3)
  - Aggression [Unknown]
  - Agitation [Not Recovered/Not Resolved]
  - Delusion [Unknown]

NARRATIVE: CASE EVENT DATE: 20250531
